FAERS Safety Report 9832024 (Version 2)
Quarter: 2014Q1

REPORT INFORMATION
  Report Type: Spontaneous
  Country: GB (occurrence: GB)
  Receive Date: 20140121
  Receipt Date: 20140127
  Transmission Date: 20141002
  Serious: Yes (Death)
  Sender: FDA-Public Use
  Company Number: PHFR2014GB000781

PATIENT
  Sex: Female

DRUGS (6)
  1. CLOZARIL [Suspect]
     Indication: SCHIZOPHRENIA
     Dosage: 500 MG, DAILY
     Route: 048
     Dates: start: 20061023
  2. SODIUM VALPROATE [Concomitant]
     Dosage: 1200 MG, DAILY
     Route: 048
  3. OMEPRAZOLE [Concomitant]
     Dosage: 20 MG, DAILY
     Route: 048
  4. HYOSCINE HYDROBROMIDE [Concomitant]
     Dosage: 300 MG, DAILY
     Route: 048
  5. SALBUTAMOL [Concomitant]
  6. AVIL MALEATE [Concomitant]

REACTIONS (2)
  - Asthma [Fatal]
  - Bronchopneumonia [Fatal]
